FAERS Safety Report 8266999-0 (Version None)
Quarter: 2012Q2

REPORT INFORMATION
  Report Type: 
  Country: None (occurrence: None)
  Receive Date: 20120409
  Receipt Date: 20120403
  Transmission Date: 20120825
  Serious: No
  Sender: FDA-Public Use
  Company Number: US-PFIZER INC-2012085486

PATIENT
  Sex: Male
  Weight: 81.633 kg

DRUGS (3)
  1. OXYCODONE [Concomitant]
     Indication: BACK PAIN
     Dosage: UNK
  2. VIAGRA [Suspect]
     Indication: ERECTILE DYSFUNCTION
     Dosage: 50 MG, AS NEEDED
     Route: 048
     Dates: start: 20120301
  3. FISH OIL [Concomitant]
     Indication: ARTHROPATHY
     Dosage: UNK
     Route: 048

REACTIONS (2)
  - NASAL CONGESTION [None]
  - DRUG INEFFECTIVE [None]
